FAERS Safety Report 24873739 (Version 2)
Quarter: 2025Q1

REPORT INFORMATION
  Report Type: Spontaneous
  Country: US (occurrence: US)
  Receive Date: 20250122
  Receipt Date: 20250123
  Transmission Date: 20250408
  Serious: Yes (Hospitalization, Other)
  Sender: SUNOVION
  Company Number: US-SMPA-2025SPA000375

PATIENT

DRUGS (1)
  1. ORGOVYX [Suspect]
     Active Substance: RELUGOLIX
     Indication: Prostate cancer
     Dosage: 120 MG, QD
     Route: 048
     Dates: end: 202410

REACTIONS (7)
  - Metastases to lymph nodes [Unknown]
  - Metastases to bone [Unknown]
  - Chest discomfort [Unknown]
  - Cardiac disorder [Unknown]
  - Loss of consciousness [Unknown]
  - Gynaecomastia [Unknown]
  - Feeling hot [Unknown]
